FAERS Safety Report 7593061-2 (Version None)
Quarter: 2011Q3

REPORT INFORMATION
  Report Type: 
  Country: None (occurrence: None)
  Receive Date: 20110706
  Receipt Date: 20110621
  Transmission Date: 20111222
  Serious: Yes (Hospitalization)
  Sender: FDA-Public Use
  Company Number: US-ROCHE-786522

PATIENT
  Sex: Female
  Weight: 52 kg

DRUGS (13)
  1. CISPLATIN [Suspect]
     Route: 065
  2. LEXAPRO [Concomitant]
  3. NEURONTIN [Concomitant]
  4. NORCO [Concomitant]
  5. SODIUM BICARBONATE [Concomitant]
  6. FILGRASTIM [Suspect]
     Route: 065
  7. DEXAMETHASONE [Suspect]
     Route: 065
  8. MIFAMURTIDE [Suspect]
     Dosage: CYCLIC
     Route: 042
     Dates: start: 20100604, end: 20101117
  9. DOCETAXEL [Suspect]
     Route: 065
  10. IFOSFAMIDE [Suspect]
     Route: 065
  11. GEMCITABINE [Suspect]
     Route: 065
  12. BEVACIZUMAB [Suspect]
     Route: 065
  13. BACTRIM [Concomitant]

REACTIONS (2)
  - PERICARDIAL EFFUSION [None]
  - BLOOD CREATININE INCREASED [None]
